FAERS Safety Report 5903742-1 (Version None)
Quarter: 2008Q3

REPORT INFORMATION
  Report Type: 
  Country: None (occurrence: None)
  Receive Date: 20080919
  Receipt Date: 20080804
  Transmission Date: 20090109
  Serious: Yes (Other)
  Sender: FDA-Public Use
  Company Number: US-WYE-H05388308

PATIENT
  Sex: Female

DRUGS (1)
  1. PRISTIQ [Suspect]
     Indication: PAIN MANAGEMENT
     Dosage: 50 MG - FREQUENCY UNSPECIFIED, ORAL
     Route: 048
     Dates: start: 20080623, end: 20080721

REACTIONS (2)
  - PAROSMIA [None]
  - SKIN ODOUR ABNORMAL [None]
